FAERS Safety Report 5100192-5 (Version None)
Quarter: 2006Q3

REPORT INFORMATION
  Report Type: 
  Country: None (occurrence: None)
  Receive Date: 20060728
  Receipt Date: 20060201
  Transmission Date: 20061208
  Serious: Yes (Life-Threatening, Hospitalization)
  Sender: FDA-Public Use
  Company Number: 200609800

PATIENT
  Age: 77 Year
  Sex: Male
  Weight: 75 kg

DRUGS (9)
  1. CARIMUNE [Suspect]
     Indication: AUTOIMMUNE DISORDER
     Dosage: SEE IMAGE
     Route: 042
     Dates: start: 20060111, end: 20060113
  2. CARIMUNE [Suspect]
     Indication: NEUROPATHY
     Dosage: SEE IMAGE
     Route: 042
     Dates: start: 20060111, end: 20060113
  3. CARIMUNE [Suspect]
     Indication: NEUROPATHY
     Dosage: IV
     Route: 042
  4. CARIMUNE [Suspect]
     Dosage: IV
     Route: 042
  5. GAMMA-P IV [Concomitant]
     Indication: AUTOIMMUNE DISORDER
     Dosage: IV
     Route: 042
     Dates: start: 20060109, end: 20060110
  6. COZAAR [Concomitant]
  7. ACTOS [Concomitant]
  8. INSULIN [Concomitant]
  9. GLUCOPHAGE [Concomitant]

REACTIONS (4)
  - ANURIA [None]
  - OEDEMA PERIPHERAL [None]
  - OLIGURIA [None]
  - RENAL FAILURE [None]
